FAERS Safety Report 19228903 (Version 1)
Quarter: 2021Q2

REPORT INFORMATION
  Report Type: Spontaneous
  Country: BR (occurrence: BR)
  Receive Date: 20210507
  Receipt Date: 20210507
  Transmission Date: 20210717
  Serious: Yes (Hospitalization)
  Sender: FDA-Public Use
  Company Number: BR-ROCHE-2822967

PATIENT
  Sex: Female

DRUGS (5)
  1. HERCEPTIN [Suspect]
     Active Substance: TRASTUZUMAB
     Indication: TRIPLE POSITIVE BREAST CANCER
     Route: 065
     Dates: start: 20190806
  2. DOCETAXEL. [Concomitant]
     Active Substance: DOCETAXEL
     Indication: TRIPLE POSITIVE BREAST CANCER
     Dates: start: 20190806, end: 20191121
  3. PERJETA [Suspect]
     Active Substance: PERTUZUMAB
     Indication: TRIPLE POSITIVE BREAST CANCER
     Route: 065
     Dates: start: 20190806
  4. TAMOXIFEN [Concomitant]
     Active Substance: TAMOXIFEN
     Indication: TRIPLE POSITIVE BREAST CANCER
     Dates: start: 201912
  5. LEUPRORELIN [Concomitant]
     Active Substance: LEUPROLIDE ACETATE
     Route: 030
     Dates: start: 20200512

REACTIONS (1)
  - Axonal and demyelinating polyneuropathy [Not Recovered/Not Resolved]
